FAERS Safety Report 8838090 (Version 2)
Quarter: 2012Q4

REPORT INFORMATION
  Report Type: 
  Country: US (occurrence: US)
  Receive Date: 20121012
  Receipt Date: 20121017
  Transmission Date: 20130627
  Serious: Yes (Death)
  Sender: FDA-Public Use
  Company Number: US-ASTELLAS-2012US009991

PATIENT
  Sex: Female
  Weight: 59 kg

DRUGS (1)
  1. TARCEVA [Suspect]
     Indication: LUNG NEOPLASM MALIGNANT
     Dosage: 100 mg, UID/QD
     Route: 048
     Dates: start: 201105, end: 201208

REACTIONS (3)
  - Incorrect dose administered [Unknown]
  - Lung cancer metastatic [Fatal]
  - Metastases to central nervous system [Fatal]
